FAERS Safety Report 8255152-2 (Version None)
Quarter: 2012Q2

REPORT INFORMATION
  Report Type: 
  Country: None (occurrence: None)
  Receive Date: 20120403
  Receipt Date: 20120323
  Transmission Date: 20120825
  Serious: Yes (Hospitalization)
  Sender: FDA-Public Use
  Company Number: US-JNJFOC-20120313488

PATIENT
  Sex: Male

DRUGS (6)
  1. DEPAKOTE [Concomitant]
     Indication: CONVULSION
     Route: 048
  2. RISPERDAL CONSTA [Suspect]
     Indication: SCHIZOAFFECTIVE DISORDER
     Route: 030
     Dates: start: 20120201, end: 20120201
  3. DEPAKOTE [Concomitant]
     Route: 048
  4. INVEGA SUSTENNA [Suspect]
     Indication: SCHIZOAFFECTIVE DISORDER
     Route: 030
     Dates: start: 20120301
  5. COGENTIN [Concomitant]
     Route: 048
     Dates: start: 20120201
  6. TOPAMAX [Suspect]
     Indication: PRODUCT USED FOR UNKNOWN INDICATION
     Route: 048

REACTIONS (4)
  - GASTROOESOPHAGEAL REFLUX DISEASE [None]
  - NEGATIVE THOUGHTS [None]
  - INSOMNIA [None]
  - DRUG INEFFECTIVE [None]
